FAERS Safety Report 16633816 (Version 1)
Quarter: 2019Q3

REPORT INFORMATION
  Report Type: Spontaneous
  Country: US (occurrence: US)
  Receive Date: 20190725
  Receipt Date: 20190725
  Transmission Date: 20191004
  Serious: Yes (Other)
  Sender: FDA-Public Use
  Company Number: None

PATIENT
  Age: 66 Year
  Sex: Female
  Weight: 70.2 kg

DRUGS (4)
  1. MUCINEX DM [Concomitant]
     Active Substance: DEXTROMETHORPHAN HYDROBROMIDE\GUAIFENESIN
  2. DULERA [Suspect]
     Active Substance: FORMOTEROL FUMARATE DIHYDRATE\MOMETASONE FUROATE
     Indication: ASTHMA
     Dates: start: 20190716, end: 20190719
  3. MULTI VITAMINS [Concomitant]
     Active Substance: VITAMINS
  4. ANTIHISTAMINES [Concomitant]
     Active Substance: ANTIHISTAMINES NOS

REACTIONS (2)
  - Throat irritation [None]
  - Oropharyngeal pain [None]

NARRATIVE: CASE EVENT DATE: 20190718
